FAERS Safety Report 21679165 (Version 1)
Quarter: 2022Q4

REPORT INFORMATION
  Report Type: Spontaneous
  Country: None (occurrence: GB)
  Receive Date: 20221204
  Receipt Date: 20221204
  Transmission Date: 20230112
  Serious: Yes (Disabling)
  Sender: FDA-Public Use
  Company Number: GB-B.Braun Medical Inc.-2135520

PATIENT
  Age: 40 Year
  Sex: Female

DRUGS (1)
  1. ACETAMINOPHEN [Suspect]
     Active Substance: ACETAMINOPHEN
     Indication: Product used for unknown indication

REACTIONS (4)
  - Heart rate decreased [Recovering/Resolving]
  - Hypotension [Recovering/Resolving]
  - Dizziness [Recovered/Resolved]
  - Asthenia [Recovering/Resolving]
